FAERS Safety Report 7386968-2 (Version None)
Quarter: 2011Q1

REPORT INFORMATION
  Report Type: 
  Country: None (occurrence: None)
  Receive Date: 20110331
  Receipt Date: 20110322
  Transmission Date: 20110831
  Serious: Yes (Other)
  Sender: FDA-Public Use
  Company Number: US-ASTRAZENECA-2011SE16031

PATIENT
  Sex: Female

DRUGS (1)
  1. ANASTROZOLE [Suspect]
     Indication: BREAST CANCER
     Route: 048

REACTIONS (5)
  - DYSPNOEA [None]
  - VAGINAL HAEMORRHAGE [None]
  - DIALYSIS [None]
  - COUGH [None]
  - OPTIC NEUROPATHY [None]
